FAERS Safety Report 20973007 (Version 1)
Quarter: 2022Q2

REPORT INFORMATION
  Report Type: Spontaneous
  Country: BR (occurrence: BR)
  Receive Date: 20220617
  Receipt Date: 20220617
  Transmission Date: 20220721
  Serious: Yes (Life-Threatening, Hospitalization, Other)
  Sender: FDA-Public Use
  Company Number: BR-MLMSERVICE-2022060335728991

PATIENT
  Age: 62 Year
  Sex: Male

DRUGS (4)
  1. HYDROXYCHLOROQUINE [Suspect]
     Active Substance: HYDROXYCHLOROQUINE
     Indication: COVID-19
  2. AZITHROMYCIN [Concomitant]
     Active Substance: AZITHROMYCIN
     Indication: COVID-19
  3. NITAZOXANIDE [Concomitant]
     Active Substance: NITAZOXANIDE
     Indication: COVID-19
  4. OXYGEN [Concomitant]
     Active Substance: OXYGEN
     Indication: COVID-19

REACTIONS (2)
  - Diarrhoea [Recovered/Resolved]
  - Hypotension [Recovered/Resolved]
